FAERS Safety Report 11239904 (Version 1)
Quarter: 2015Q3

REPORT INFORMATION
  Report Type: Spontaneous
  Country: US (occurrence: None)
  Receive Date: 20150701
  Receipt Date: 20150701
  Transmission Date: 20151125
  Serious: Yes (Other)
  Sender: FDA-Public Use
  Company Number: None

PATIENT
  Age: 63 Year
  Sex: Female
  Weight: 120.2 kg

DRUGS (1)
  1. LACTULOSE 100 M/15 SOL [Suspect]
     Active Substance: LACTULOSE
     Indication: HEPATIC CIRRHOSIS
     Route: 048
     Dates: start: 20140416, end: 20140420

REACTIONS (4)
  - Product quality issue [None]
  - Reaction to drug excipients [None]
  - Rash [None]
  - Product substitution issue [None]

NARRATIVE: CASE EVENT DATE: 20140410
